FAERS Safety Report 7573422-8 (Version None)
Quarter: 2011Q2

REPORT INFORMATION
  Report Type: 
  Country: None (occurrence: None)
  Receive Date: 20110627
  Receipt Date: 20110524
  Transmission Date: 20111010
  Serious: No
  Sender: FDA-Public Use
  Company Number: A0928943A

PATIENT
  Sex: Female

DRUGS (9)
  1. ASPIRIN [Concomitant]
  2. DIOVAN [Concomitant]
  3. SYNTHROID [Concomitant]
  4. VITAMIN TAB [Concomitant]
  5. SIMVASTATIN [Concomitant]
  6. DILTIAZEM [Concomitant]
  7. LAMICTAL [Suspect]
     Dosage: 50MG PER DAY
     Route: 048
     Dates: end: 20110324
  8. KEPPRA [Concomitant]
  9. PROTONIX [Concomitant]

REACTIONS (3)
  - FATIGUE [None]
  - NECK PAIN [None]
  - MUSCLE TWITCHING [None]
